FAERS Safety Report 5810669-2 (Version None)
Quarter: 2008Q3

REPORT INFORMATION
  Report Type: 
  Country: None (occurrence: None)
  Receive Date: 20080715
  Receipt Date: 20080710
  Transmission Date: 20090109
  Serious: Yes (Hospitalization)
  Sender: FDA-Public Use
  Company Number: JP-BOEHRINGER INGELHEIM GMBH, GERMANY-2008-DE-04008GD

PATIENT
  Age: 88 Year
  Sex: Female

DRUGS (1)
  1. DIPYRIDAMOLE [Suspect]
     Indication: ANTIPLATELET THERAPY

REACTIONS (1)
  - EXTRADURAL HAEMATOMA [None]
